FAERS Safety Report 7970792-3 (Version None)
Quarter: 2011Q4

REPORT INFORMATION
  Report Type: 
  Country: None (occurrence: None)
  Receive Date: 20111212
  Receipt Date: 20111205
  Transmission Date: 20120403
  Serious: Yes (Death)
  Sender: FDA-Public Use
  Company Number: PHHY2011CN107041

PATIENT

DRUGS (10)
  1. NEUPOGEN [Concomitant]
     Dosage: UNK UKN, UNK
  2. ANTI-THYMOCYTE GLOBULIN RABBIT NOS [Concomitant]
     Indication: STEM CELL TRANSPLANT
     Dosage: 5 MG/KG, UNK
  3. METHOTREXATE [Concomitant]
     Indication: STEM CELL TRANSPLANT
     Dosage: 15 MG/M2, ON DAY 1
  4. METHOTREXATE [Concomitant]
     Dosage: 10 MG/M2, ON DAYS 3, 6 AND 11
  5. CYCLOSPORINE [Suspect]
     Dosage: 2.5 MG/KG/DAY
  6. BASILIXIMAB [Suspect]
     Dosage: 20 MG ON DAY 4 POST TRANSPLANTATION
  7. BASILIXIMAB [Suspect]
     Indication: STEM CELL TRANSPLANT
     Dosage: 20 MG TWO HOURS PRIOR TO TRANSPLANT
  8. MYCOPHENOLATE MOFETIL [Concomitant]
     Indication: STEM CELL TRANSPLANT
     Dosage: 500 MG, UNK
  9. CYCLOSPORINE [Suspect]
     Indication: STEM CELL TRANSPLANT
     Dosage: 1.5 MG/KG DAILY, ON DAY 7AND 2
     Route: 042
  10. CYCLOSPORINE [Suspect]
     Dosage: 5 MG/KG/DAY

REACTIONS (1)
  - ACUTE GRAFT VERSUS HOST DISEASE IN INTESTINE [None]
